FAERS Safety Report 5391890-7 (Version None)
Quarter: 2007Q3

REPORT INFORMATION
  Report Type: 
  Country: None (occurrence: None)
  Receive Date: 20070718
  Receipt Date: 20070710
  Transmission Date: 20080115
  Serious: Yes (Death)
  Sender: FDA-Public Use
  Company Number: US019029

PATIENT
  Age: 32 Year
  Sex: Female

DRUGS (2)
  1. FENTORA [Suspect]
     Indication: CANCER PAIN
     Dosage: 800 UG QD BUCCAL
     Route: 002
  2. FENTANYL TRANSDERMAL SYSTEM [Concomitant]

REACTIONS (4)
  - BREAST CANCER METASTATIC [None]
  - CHEST DISCOMFORT [None]
  - DISEASE PROGRESSION [None]
  - MUSCLE RIGIDITY [None]
